FAERS Safety Report 23874634 (Version 2)
Quarter: 2024Q2

REPORT INFORMATION
  Report Type: Spontaneous
  Country: US (occurrence: US)
  Receive Date: 20240520
  Receipt Date: 20240626
  Transmission Date: 20240716
  Serious: Yes (Other)
  Sender: FDA-Public Use
  Company Number: US-TRAVERE-2024TVT00470

PATIENT
  Age: 32 Year
  Sex: Female

DRUGS (11)
  1. FILSPARI [Suspect]
     Active Substance: SPARSENTAN
     Indication: IgA nephropathy
     Dosage: THE PATIENT STARTED FILSPARI ON 05-MARCH-2024 FOR IGAN WITH A STARTING DOSE OF 200MG ONCE DAILY FOR
     Route: 048
     Dates: start: 20240305
  2. FILSPARI [Suspect]
     Active Substance: SPARSENTAN
     Dosage: THE PATIENT STARTED FILSPARI ON 05-MARCH-2024 FOR IGAN WITH A STARTING DOSE OF 200MG ONCE DAILY FOR
     Route: 048
     Dates: end: 20240509
  3. FILSPARI [Suspect]
     Active Substance: SPARSENTAN
     Dosage: THE PATIENT STARTED FILSPARI ON 05-MARCH-2024 FOR IGAN WITH A STARTING DOSE OF 200MG ONCE DAILY FOR
     Route: 048
     Dates: start: 20240604
  4. TYLENOL [Suspect]
     Active Substance: ACETAMINOPHEN
     Indication: Myalgia
     Dates: end: 202405
  5. NORETHINDRONE [Suspect]
     Active Substance: NORETHINDRONE
     Indication: Abnormal uterine bleeding
     Dates: end: 202405
  6. JARDIANCE [Concomitant]
     Active Substance: EMPAGLIFLOZIN
  7. EPLERENONE [Concomitant]
     Active Substance: EPLERENONE
  8. CITALOPRAM [Concomitant]
     Active Substance: CITALOPRAM\CITALOPRAM HYDROBROMIDE
  9. BUPROPION [Concomitant]
     Active Substance: BUPROPION
  10. CYCLOBENZAPRINE [Concomitant]
     Active Substance: CYCLOBENZAPRINE
  11. ALBUTEROL [Concomitant]
     Active Substance: ALBUTEROL

REACTIONS (1)
  - Hepatotoxicity [Recovered/Resolved]

NARRATIVE: CASE EVENT DATE: 20240401
